FAERS Safety Report 17173729 (Version 2)
Quarter: 2021Q4

REPORT INFORMATION
  Report Type: Report from Study
  Country: CN (occurrence: CN)
  Receive Date: 20191219
  Receipt Date: 20211202
  Transmission Date: 20220303
  Serious: Yes (Other)
  Sender: FDA-Public Use
  Company Number: CN-GUERBETG-201901684

PATIENT

DRUGS (5)
  1. LIPIODOL ULTRA-FLUIDE [Suspect]
     Active Substance: ETHIODIZED OIL
     Indication: Transcatheter arterial chemoembolisation
     Dosage: 2-20 ML
     Route: 013
  2. ADRIAMYCIN [Suspect]
     Active Substance: DOXORUBICIN HYDROCHLORIDE
     Indication: Transcatheter arterial chemoembolisation
     Dosage: 20-60 MG
     Route: 013
  3. DEVICE\GELATIN [Concomitant]
     Active Substance: DEVICE\GELATIN
     Indication: Transcatheter arterial chemoembolisation
     Dosage: 300-700UM
     Route: 013
  4. MORPHINE [Concomitant]
     Active Substance: MORPHINE
     Indication: Analgesic therapy
     Route: 065
  5. LIDOCAINE [Concomitant]
     Active Substance: LIDOCAINE
     Indication: Anaesthesia
     Dosage: 5-10 ML
     Route: 065

REACTIONS (2)
  - Biloma [Unknown]
  - Product use in unapproved indication [Unknown]
